FAERS Safety Report 9975033 (Version 1)
Quarter: 2014Q1

REPORT INFORMATION
  Report Type: Report from Study
  Country: US (occurrence: US)
  Receive Date: 20140306
  Receipt Date: 20140306
  Transmission Date: 20141002
  Serious: No
  Sender: FDA-Public Use
  Company Number: US-ABBVIE-13P-163-1160706-00

PATIENT
  Sex: Female

DRUGS (5)
  1. HUMIRA [Suspect]
     Indication: RHEUMATOID ARTHRITIS
  2. METFORMIN [Concomitant]
     Indication: DIABETES MELLITUS
  3. METHOTREXATE [Concomitant]
     Indication: RHEUMATOID ARTHRITIS
     Dosage: SIX 2.5 MG TABLETS WEEKLY
  4. FOLIC ACID [Concomitant]
     Indication: PRODUCT USED FOR UNKNOWN INDICATION
  5. SERTRALINE [Concomitant]
     Indication: PRODUCT USED FOR UNKNOWN INDICATION
     Dosage: AT BEDTIME

REACTIONS (5)
  - Osteoporosis [Unknown]
  - Gastrooesophageal reflux disease [Not Recovered/Not Resolved]
  - Blood cholesterol increased [Unknown]
  - Arthralgia [Unknown]
  - Joint swelling [Unknown]
